FAERS Safety Report 5771334-3 (Version None)
Quarter: 2008Q2

REPORT INFORMATION
  Report Type: 
  Country: None (occurrence: None)
  Receive Date: 20080613
  Receipt Date: 20080608
  Transmission Date: 20081010
  Serious: Yes (Other)
  Sender: FDA-Public Use
  Company Number: US-JNJFOC-20080602550

PATIENT
  Sex: Female

DRUGS (4)
  1. TYLENOL [Suspect]
  2. TYLENOL [Suspect]
     Indication: DRUG USE FOR UNKNOWN INDICATION
  3. PERCOCET [Suspect]
     Indication: PAIN
     Dosage: 1-2 DOSES PER DAY
  4. UNSPECIFIED MEDICATIONS [Concomitant]

REACTIONS (1)
  - HEPATIC STEATOSIS [None]
